FAERS Safety Report 6291526-7 (Version None)
Quarter: 2009Q3

REPORT INFORMATION
  Report Type: 
  Country: None (occurrence: None)
  Receive Date: 20090730
  Receipt Date: 20090730
  Transmission Date: 20100115
  Serious: No
  Sender: FDA-Public Use
  Company Number: None

PATIENT
  Age: 51 Year
  Weight: 38.5557 kg

DRUGS (1)
  1. ASACOL [Suspect]
     Indication: COLITIS
     Dosage: 1200 MG DAILY PO
     Route: 048
     Dates: start: 20080110, end: 20080115

REACTIONS (6)
  - ABDOMINAL PAIN LOWER [None]
  - DIARRHOEA HAEMORRHAGIC [None]
  - DRUG PRESCRIBING ERROR [None]
  - PANCREATITIS [None]
  - WEIGHT DECREASED [None]
  - WRONG DRUG ADMINISTERED [None]
